FAERS Safety Report 7661857-4 (Version None)
Quarter: 2011Q3

REPORT INFORMATION
  Report Type: 
  Country: None (occurrence: None)
  Receive Date: 20110805
  Receipt Date: 20101129
  Transmission Date: 20111222
  Serious: No
  Sender: FDA-Public Use
  Company Number: US-ABBOTT-10P-163-0688096-00

PATIENT
  Sex: Male
  Weight: 88.53 kg

DRUGS (7)
  1. CRESTOR [Concomitant]
     Indication: PRODUCT USED FOR UNKNOWN INDICATION
  2. PLAVIX [Concomitant]
     Indication: PRODUCT USED FOR UNKNOWN INDICATION
  3. CIPROFLAXACIN [Concomitant]
     Indication: INFECTION
     Dates: start: 20101125
  4. ASPIRIN [Concomitant]
     Indication: PRODUCT USED FOR UNKNOWN INDICATION
  5. METOPROLOL TARTRATE [Concomitant]
     Indication: PRODUCT USED FOR UNKNOWN INDICATION
  6. NIASPAN [Suspect]
     Indication: PRODUCT USED FOR UNKNOWN INDICATION
     Dosage: AT BEDTIME
     Dates: start: 20101125
  7. METRONIDAZOLE [Concomitant]
     Indication: INFECTION
     Dates: start: 20101125

REACTIONS (1)
  - DIARRHOEA [None]
